FAERS Safety Report 5311162-6 (Version None)
Quarter: 2007Q2

REPORT INFORMATION
  Report Type: 
  Country: None (occurrence: None)
  Receive Date: 20070430
  Receipt Date: 20070419
  Transmission Date: 20071010
  Serious: Yes (Life-Threatening)
  Sender: FDA-Public Use
  Company Number: JP-BAYER-200710245BYL

PATIENT
  Age: 73 Year
  Sex: Male
  Weight: 52 kg

DRUGS (9)
  1. CIPROXAN-I.V. [Suspect]
     Indication: PNEUMONIA
     Dosage: TOTAL DAILY DOSE: 300 MG  UNIT DOSE: 300 MG
     Route: 042
     Dates: start: 20070316, end: 20070316
  2. CIPROXAN-I.V. [Suspect]
     Dosage: TOTAL DAILY DOSE: 600 MG  UNIT DOSE: 300 MG
     Route: 042
     Dates: start: 20070317, end: 20070322
  3. CIPROXAN-I.V. [Suspect]
     Dosage: TOTAL DAILY DOSE: 600 MG  UNIT DOSE: 300 MG
     Route: 048
     Dates: start: 20070118, end: 20070131
  4. ADONA [Concomitant]
     Indication: GASTRIC ULCER HAEMORRHAGE
     Dosage: TOTAL DAILY DOSE: 50 MG
     Route: 042
     Dates: start: 20070319, end: 20070321
  5. TRANSAMIN [Concomitant]
     Indication: GASTRIC ULCER HAEMORRHAGE
     Dosage: TOTAL DAILY DOSE: 1 G
     Route: 042
     Dates: start: 20070319, end: 20070321
  6. OMEPRAL [Concomitant]
     Indication: GASTRIC ULCER HAEMORRHAGE
     Dosage: TOTAL DAILY DOSE: 40 MG
     Route: 042
     Dates: start: 20070319, end: 20070322
  7. FERRICON [Concomitant]
     Indication: GASTRIC ULCER HAEMORRHAGE
     Dosage: TOTAL DAILY DOSE: 100 MG
     Route: 042
     Dates: start: 20070319, end: 20070322
  8. MUCODYNE DS [Concomitant]
     Indication: EMPHYSEMA
     Dosage: TOTAL DAILY DOSE: 1500 MG
     Route: 051
     Dates: end: 20070318
  9. LEVOFLOXACIN [Concomitant]
     Indication: PNEUMONIA
     Route: 048
     Dates: start: 20070216, end: 20070220

REACTIONS (1)
  - HYPOGLYCAEMIA [None]
